FAERS Safety Report 7208267-1 (Version None)
Quarter: 2010Q4

REPORT INFORMATION
  Report Type: 
  Country: None (occurrence: None)
  Receive Date: 20101230
  Receipt Date: 20101230
  Transmission Date: 20110411
  Serious: Yes (Other)
  Sender: FDA-Public Use
  Company Number: None

PATIENT

DRUGS (1)
  1. MIRENA [Suspect]
     Indication: PREGNANCY
     Dates: start: 20050801, end: 20080801

REACTIONS (2)
  - INFERTILITY FEMALE [None]
  - WEIGHT INCREASED [None]
